FAERS Safety Report 12139055 (Version 3)
Quarter: 2016Q2

REPORT INFORMATION
  Report Type: Spontaneous
  Country: DE (occurrence: DE)
  Receive Date: 20160302
  Receipt Date: 20160505
  Transmission Date: 20160815
  Serious: Yes (Hospitalization)
  Sender: FDA-Public Use
  Company Number: PHHY2016DE025393

PATIENT
  Sex: Male
  Weight: 108.9 kg

DRUGS (5)
  1. AXIRON [Concomitant]
     Active Substance: TESTOSTERONE
     Indication: SURGERY
     Dosage: 2 X 2 PUMP DAILY
     Route: 062
     Dates: start: 201503
  2. HYDROCORTISON//HYDROCORTISONE [Concomitant]
     Indication: SURGERY
     Dosage: 20 MG, QD
     Route: 048
     Dates: start: 201402
  3. NOCUTIL [Concomitant]
     Active Substance: DESMOPRESSIN ACETATE
     Indication: SURGERY
     Dosage: 2 X 2 PUMP DAILY
     Route: 062
     Dates: start: 201402
  4. L-TYROSINE [Concomitant]
     Indication: HYPOTHYROIDISM
     Dosage: 100 MG, QD
     Route: 048
     Dates: start: 201402
  5. SIGNIFOR LAR [Suspect]
     Active Substance: PASIREOTIDE
     Indication: ACROMEGALY
     Dosage: 40 MG, QMO, (EVERY 28 DAYS)
     Route: 030
     Dates: start: 201503

REACTIONS (1)
  - Thyroid cancer [Recovered/Resolved with Sequelae]

NARRATIVE: CASE EVENT DATE: 20160219
